FAERS Safety Report 20486285 (Version 1)
Quarter: 2022Q1

REPORT INFORMATION
  Report Type: Spontaneous
  Country: FR (occurrence: FR)
  Receive Date: 20220217
  Receipt Date: 20220217
  Transmission Date: 20220423
  Serious: Yes (Other)
  Sender: FDA-Public Use
  Company Number: FR-GSKCCFEMEA-Case-01398682_AE-53841

PATIENT
  Age: 49 Year
  Sex: Female

DRUGS (9)
  1. SUMATRIPTAN SUCCINATE [Suspect]
     Active Substance: SUMATRIPTAN SUCCINATE
     Indication: Cluster headache
     Dosage: 6 MG, BID (DEPENDING UPON CRISIS 2X PER DAY)
     Route: 030
  2. SUMATRIPTAN SUCCINATE [Suspect]
     Active Substance: SUMATRIPTAN SUCCINATE
  3. VERAPAMIL [Concomitant]
     Active Substance: VERAPAMIL HYDROCHLORIDE
     Indication: Cluster headache
     Dosage: 120 MG, TID
     Route: 048
     Dates: start: 20210310
  4. KETOPROFEN [Concomitant]
     Active Substance: KETOPROFEN
     Indication: Hyperchlorhydria
     Dosage: 150 MG, Z, (4/WEEK)
     Route: 048
     Dates: start: 2019
  5. ESOMEPRAZOLE [Concomitant]
     Active Substance: ESOMEPRAZOLE
     Indication: Hyperchlorhydria
     Dosage: 40 MG
     Route: 048
     Dates: start: 2019
  6. ZOLMITRIPTAN [Concomitant]
     Active Substance: ZOLMITRIPTAN
     Indication: Pain
     Dosage: 1 DF, Z, (1 PER CRISIS, 4 PER WEEK)
     Route: 048
     Dates: start: 2019
  7. BETAHISTINE [Concomitant]
     Active Substance: BETAHISTINE
     Indication: Dizziness
     Dosage: UNK
     Route: 048
     Dates: start: 2019
  8. ACETYLLEUCINE, L- [Concomitant]
     Active Substance: ACETYLLEUCINE, L-
     Indication: Dizziness
     Dosage: 1 DF, BID,  (1 GEL 1; 2X/D)
     Route: 048
     Dates: start: 2019
  9. DOMPERIDONE [Concomitant]
     Active Substance: DOMPERIDONE
     Indication: Nausea
     Dosage: 1 DF, Z, (1-2 TB 2X/WEEK)
     Dates: start: 2019

REACTIONS (7)
  - Diaphragmatic disorder [Recovered/Resolved]
  - Sense of oppression [Recovered/Resolved]
  - Chest discomfort [Recovered/Resolved]
  - Nausea [Recovered/Resolved]
  - Muscle contractions involuntary [Recovered/Resolved]
  - Adverse event [Unknown]
  - Product prescribing error [Unknown]

NARRATIVE: CASE EVENT DATE: 20210315
